FAERS Safety Report 11663730 (Version 1)
Quarter: 2015Q4

REPORT INFORMATION
  Report Type: Spontaneous
  Country: JP (occurrence: JP)
  Receive Date: 20151027
  Receipt Date: 20151027
  Transmission Date: 20160304
  Serious: Yes (Hospitalization, Other)
  Sender: FDA-Public Use
  Company Number: JP-ASTELLAS-2015US039509

PATIENT
  Age: 17 Year
  Sex: Male

DRUGS (1)
  1. AMBISOME [Suspect]
     Active Substance: AMPHOTERICIN B
     Indication: MUCORMYCOSIS
     Dosage: UNK UNK, UNKNOWN FREQ.
     Route: 041

REACTIONS (5)
  - Septic shock [Unknown]
  - Trichosporon infection [Unknown]
  - Blood beta-D-glucan increased [Unknown]
  - Drug ineffective [Unknown]
  - Cryptococcus test positive [Unknown]
